FAERS Safety Report 6414284-1 (Version None)
Quarter: 2009Q4

REPORT INFORMATION
  Report Type: 
  Country: None (occurrence: None)
  Receive Date: 20091026
  Receipt Date: 20091016
  Transmission Date: 20100525
  Serious: Yes (Other)
  Sender: FDA-Public Use
  Company Number: US-JNJCH-2009027499

PATIENT
  Sex: Female

DRUGS (1)
  1. BENGAY VANISHING [Suspect]
     Indication: JOINT SPRAIN
     Dosage: TEXT:A 3 INCH LINE ONCE DAILY
     Route: 061
     Dates: start: 20091016, end: 20091016

REACTIONS (3)
  - BURNING SENSATION [None]
  - CAUSTIC INJURY [None]
  - RASH [None]
